FAERS Safety Report 23100179 (Version 4)
Quarter: 2024Q1

REPORT INFORMATION
  Report Type: Spontaneous
  Country: US (occurrence: US)
  Receive Date: 20231024
  Receipt Date: 20240130
  Transmission Date: 20240410
  Serious: No
  Sender: FDA-Public Use
  Company Number: US-PFIZER INC-202300079261

PATIENT
  Age: 15 Year
  Sex: Male
  Weight: 49.44 kg

DRUGS (1)
  1. GENOTROPIN [Suspect]
     Active Substance: SOMATROPIN
     Indication: Growth disorder
     Dosage: 2 MG

REACTIONS (6)
  - Drug dose omission by device [Unknown]
  - Incorrect dose administered by device [Unknown]
  - Poor quality device used [Unknown]
  - Device leakage [Unknown]
  - Device mechanical issue [Unknown]
  - Device malfunction [Unknown]
